FAERS Safety Report 10187690 (Version 1)
Quarter: 2014Q2

REPORT INFORMATION
  Report Type: Spontaneous
  Country: US (occurrence: US)
  Receive Date: 20140522
  Receipt Date: 20140522
  Transmission Date: 20141212
  Serious: No
  Sender: FDA-Public Use
  Company Number: US-SANOFI-AVENTIS-2013SA077943

PATIENT
  Sex: Female

DRUGS (4)
  1. LANTUS SOLOSTAR [Suspect]
     Dosage: SAYS SHE USES 40 UNITS IN THE MORNING DOSE:40 UNIT(S)
     Route: 051
  2. LANTUS SOLOSTAR [Suspect]
     Dosage: AT NIGHT AND SAYS WHEN SHE WAS TAKING 50 UNITS DOSE:20 UNIT(S)
     Route: 051
  3. SOLOSTAR [Concomitant]
  4. METFORMIN [Concomitant]

REACTIONS (1)
  - Chest pain [Unknown]
